FAERS Safety Report 7099262-4 (Version None)
Quarter: 2010Q4

REPORT INFORMATION
  Report Type: 
  Country: None (occurrence: None)
  Receive Date: 20101112
  Receipt Date: 20101105
  Transmission Date: 20110411
  Serious: Yes (Hospitalization)
  Sender: FDA-Public Use
  Company Number: US-US-EMD SERONO, INC.-7007148

PATIENT
  Sex: Female
  Weight: 69 kg

DRUGS (4)
  1. REBIF [Suspect]
     Indication: MULTIPLE SCLEROSIS
     Route: 058
     Dates: start: 20100505, end: 20100601
  2. REBIF [Suspect]
     Route: 058
     Dates: start: 20100601
  3. TEGRETOL [Concomitant]
     Indication: CONVULSION
     Dates: start: 20100101
  4. BENTYL [Concomitant]
     Indication: IRRITABLE BOWEL SYNDROME

REACTIONS (5)
  - COLITIS [None]
  - DIZZINESS [None]
  - INJECTION SITE PAIN [None]
  - IRRITABLE BOWEL SYNDROME [None]
  - WEIGHT DECREASED [None]
